FAERS Safety Report 5843259-6 (Version None)
Quarter: 2008Q3

REPORT INFORMATION
  Report Type: 
  Country: None (occurrence: None)
  Receive Date: 20080813
  Receipt Date: 20080804
  Transmission Date: 20090109
  Serious: Yes (Death, Hospitalization)
  Sender: FDA-Public Use
  Company Number: US-CELGENEUS-056-20785-08080413

PATIENT
  Sex: Female

DRUGS (3)
  1. THALIDOMIDE [Suspect]
     Indication: LEUKAEMIA PLASMACYTIC
     Route: 048
     Dates: start: 20080701, end: 20080729
  2. VELCADE [Concomitant]
     Indication: LEUKAEMIA PLASMACYTIC
     Route: 065
  3. DEXAMETHASONE 0.5MG TAB [Concomitant]
     Indication: LEUKAEMIA PLASMACYTIC
     Route: 065

REACTIONS (1)
  - RENAL FAILURE [None]
